FAERS Safety Report 15238917 (Version 2)
Quarter: 2018Q4

REPORT INFORMATION
  Report Type: Report from Study
  Country: US (occurrence: US)
  Receive Date: 20180803
  Receipt Date: 20180817
  Transmission Date: 20190204
  Serious: Yes (Hospitalization)
  Sender: FDA-Public Use
  Company Number: US-TAIHO ONCOLOGY  INC-EU-2018-01109

PATIENT
  Age: 75 Year
  Sex: Female
  Weight: 59.93 kg

DRUGS (5)
  1. LASIX [Concomitant]
     Active Substance: FUROSEMIDE
     Dosage: NI
  2. POTASSIUM CHLORIDE. [Concomitant]
     Active Substance: POTASSIUM CHLORIDE
     Dosage: NI
  3. ZOFRAN [Concomitant]
     Active Substance: ONDANSETRON HYDROCHLORIDE
     Dosage: NI
  4. LONSURF [Suspect]
     Active Substance: TIPIRACIL HYDROCHLORIDE\TRIFLURIDINE
     Indication: COLORECTAL CANCER STAGE IV
     Dosage: PATIENT COMPLETED APPROXIMATELY 4 CYCLES.
     Route: 048
     Dates: start: 201804, end: 201806
  5. MORPHINE [Concomitant]
     Active Substance: MORPHINE
     Dosage: NI

REACTIONS (5)
  - Intestinal obstruction [Unknown]
  - Anaemia [Unknown]
  - Disease progression [Unknown]
  - Dehydration [Not Recovered/Not Resolved]
  - Hypotension [Not Recovered/Not Resolved]

NARRATIVE: CASE EVENT DATE: 2018
